FAERS Safety Report 22125042 (Version 15)
Quarter: 2024Q3

REPORT INFORMATION
  Report Type: Report from Study
  Country: IN (occurrence: IN)
  Receive Date: 20230322
  Receipt Date: 20240823
  Transmission Date: 20241016
  Serious: Yes (Other)
  Sender: ROCHE
  Company Number: IN-ROCHE-3272441

PATIENT
  Age: 55 Year
  Sex: Female

DRUGS (3)
  1. KADCYLA [Suspect]
     Active Substance: ADO-TRASTUZUMAB EMTANSINE
     Indication: Breast cancer
     Route: 042
     Dates: start: 20220124
  2. PERJETA [Suspect]
     Active Substance: PERTUZUMAB
     Indication: Product used for unknown indication
     Route: 065
  3. CALCIUM CARBONATE\CHOLECALCIFEROL [Concomitant]
     Active Substance: CALCIUM CARBONATE\CHOLECALCIFEROL

REACTIONS (22)
  - Ejection fraction decreased [Unknown]
  - Pathological fracture [Unknown]
  - Nodule [Unknown]
  - Pulmonary calcification [Unknown]
  - Pulmonary mass [Unknown]
  - Hypertransaminasaemia [Unknown]
  - Back pain [Unknown]
  - Pain [Recovered/Resolved]
  - Platelet count decreased [Not Recovered/Not Resolved]
  - Anorectal discomfort [Unknown]
  - Intervertebral disc protrusion [Unknown]
  - Dysphonia [Unknown]
  - Coronavirus infection [Not Recovered/Not Resolved]
  - Off label use [Unknown]
  - Oropharyngeal pain [Unknown]
  - Viral infection [Unknown]
  - Musculoskeletal pain [Unknown]
  - Bone erosion [Unknown]
  - Pleural thickening [Unknown]
  - Skin hypertrophy [Unknown]
  - Platelet count abnormal [Unknown]
  - Thrombocytopenia [Unknown]

NARRATIVE: CASE EVENT DATE: 20220914
